FAERS Safety Report 8849216 (Version 1)
Quarter: 2012Q4

REPORT INFORMATION
  Report Type: Spontaneous
  Country: US (occurrence: None)
  Receive Date: 20121018
  Receipt Date: 20121018
  Transmission Date: 20130627
  Serious: Yes (Life-Threatening, Hospitalization)
  Sender: FDA-Public Use
  Company Number: None

PATIENT
  Age: 17 Year
  Sex: Female
  Weight: 72.9 kg

DRUGS (1)
  1. FILGRASTIM [Suspect]
     Indication: PERIPHERAL BLOOD STEM CELL HARVEST
     Dosage: 720 mcg (2.4 mL) subQ Injection X1
     Route: 058
     Dates: start: 20120810

REACTIONS (10)
  - Dyspnoea [None]
  - Asthenia [None]
  - Dizziness [None]
  - Palpitations [None]
  - Malaise [None]
  - Throat tightness [None]
  - Abdominal pain [None]
  - Tachycardia [None]
  - Hypotension [None]
  - Unevaluable event [None]
